FAERS Safety Report 9060428 (Version 1)
Quarter: 2013Q1

REPORT INFORMATION
  Report Type: Spontaneous
  Country: US (occurrence: US)
  Receive Date: 20130212
  Receipt Date: 20130212
  Transmission Date: 20140127
  Serious: Yes (Death, Hospitalization, Other)
  Sender: FDA-Public Use
  Company Number: US-BANPHARM-20130665

PATIENT
  Age: 32 Year
  Sex: Male

DRUGS (4)
  1. VALPROIC ACID [Suspect]
     Indication: PRODUCT USED FOR UNKNOWN INDICATION
     Dosage: UNK,
     Route: 048
  2. DIPHENHYDRAMINE [Suspect]
     Indication: SUICIDE ATTEMPT
     Dosage: 2 X 60 TABLET, 50MG BOTTLES
  3. HALOPERIDOL [Suspect]
  4. ETHANOL [Suspect]

REACTIONS (23)
  - Completed suicide [Fatal]
  - Brain injury [Fatal]
  - Cardio-respiratory arrest [Fatal]
  - Intentional overdose [Fatal]
  - Convulsion [Fatal]
  - Coma [Fatal]
  - Hyperkalaemia [Fatal]
  - Tachycardia [Fatal]
  - Road traffic accident [Unknown]
  - Electrocardiogram QRS complex prolonged [Fatal]
  - Acidosis [Fatal]
  - Blood creatine phosphokinase increased [Fatal]
  - Aspartate aminotransferase increased [Fatal]
  - Alanine aminotransferase increased [Fatal]
  - Blood bilirubin increased [Fatal]
  - International normalised ratio increased [Fatal]
  - Blood creatinine increased [Fatal]
  - Electrocardiogram QT prolonged [None]
  - Cardiac arrest [None]
  - Respiratory arrest [None]
  - Body temperature increased [None]
  - Continuous haemodiafiltration [None]
  - Compartment syndrome [None]
